FAERS Safety Report 8483970-4 (Version None)
Quarter: 2012Q2

REPORT INFORMATION
  Report Type: 
  Country: None (occurrence: None)
  Receive Date: 20120402
  Receipt Date: 20110211
  Transmission Date: 20120825
  Serious: Yes (Hospitalization)
  Sender: FDA-Public Use
  Company Number: A-NJ2011-45093

PATIENT
  Age: 52 Year
  Sex: Female

DRUGS (2)
  1. EPOPROSTENOL SODIUM [Suspect]
     Indication: PULMONARY ARTERIAL HYPERTENSION
     Dosage: 14 NG/KG, PER MINM IV DRIP, 16 NG/KG, PER MIN, IV DRIP
     Route: 041
     Dates: start: 20110114, end: 20110130
  2. EPOPROSTENOL SODIUM [Suspect]
     Indication: PULMONARY ARTERIAL HYPERTENSION
     Dosage: 14 NG/KG, PER MINM IV DRIP, 16 NG/KG, PER MIN, IV DRIP
     Route: 041
     Dates: start: 20110131

REACTIONS (9)
  - PNEUMONIA [None]
  - DYSPNOEA [None]
  - HEADACHE [None]
  - CHILLS [None]
  - DIARRHOEA [None]
  - SKIN DISORDER [None]
  - NAUSEA [None]
  - TREMOR [None]
  - FLUID RETENTION [None]
